FAERS Safety Report 6869890-7 (Version None)
Quarter: 2010Q3

REPORT INFORMATION
  Report Type: 
  Country: None (occurrence: None)
  Receive Date: 20100722
  Receipt Date: 20080904
  Transmission Date: 20110219
  Serious: Yes (Other)
  Sender: FDA-Public Use
  Company Number: US-PFIZER INC-2008074637

PATIENT
  Sex: Male

DRUGS (2)
  1. CHANTIX [Suspect]
  2. ALCOHOL [Concomitant]

REACTIONS (4)
  - AGGRESSION [None]
  - AGITATION [None]
  - MEMORY IMPAIRMENT [None]
  - SPOUSAL ABUSE [None]
